FAERS Safety Report 9467643 (Version 1)
Quarter: 2013Q3

REPORT INFORMATION
  Report Type: Spontaneous
  Country: US (occurrence: None)
  Receive Date: 20130819
  Receipt Date: 20130819
  Transmission Date: 20140515
  Serious: Yes (Disabling)
  Sender: FDA-Public Use
  Company Number: None

PATIENT
  Age: 40 Year
  Sex: Female
  Weight: 55.79 kg

DRUGS (1)
  1. CIPROFLOXACIN 500MG [Suspect]
     Indication: URINARY TRACT INFECTION
     Dosage: 1 TABLET  TWICE DAILY  TAKEN BY MOUTH
     Route: 048
     Dates: start: 20130716, end: 20130719

REACTIONS (5)
  - Neuralgia [None]
  - Tendon pain [None]
  - Neck pain [None]
  - Headache [None]
  - Palpitations [None]
